FAERS Safety Report 12907604 (Version 1)
Quarter: 2016Q4

REPORT INFORMATION
  Report Type: Spontaneous
  Country: US (occurrence: US)
  Receive Date: 20161103
  Receipt Date: 20161103
  Transmission Date: 20170207
  Serious: Yes (Other)
  Sender: FDA-Public Use
  Company Number: US-BAYER-2016-209490

PATIENT
  Sex: Female

DRUGS (2)
  1. SKYLA [Suspect]
     Active Substance: LEVONORGESTREL
     Dosage: UNK
     Route: 015
     Dates: start: 20150521
  2. PLAN B [Suspect]
     Active Substance: LEVONORGESTREL
     Dosage: UNK
     Dates: start: 20161015

REACTIONS (3)
  - Product use issue [None]
  - Pregnancy with contraceptive device [Not Recovered/Not Resolved]
  - Menstruation delayed [None]
